FAERS Safety Report 5508609-9 (Version None)
Quarter: 2007Q4

REPORT INFORMATION
  Report Type: 
  Country: None (occurrence: None)
  Receive Date: 20071107
  Receipt Date: 20071105
  Transmission Date: 20080405
  Serious: Yes (Life-Threatening)
  Sender: FDA-Public Use
  Company Number: FR-BRISTOL-MYERS SQUIBB COMPANY-13968417

PATIENT
  Age: 76 Year
  Sex: Male

DRUGS (5)
  1. ETOPOPHOS FOR INJ 100 MG [Suspect]
     Indication: LUNG CANCER METASTATIC
     Route: 042
  2. CISPLATIN [Suspect]
  3. SOLU-MEDROL [Concomitant]
     Indication: PREMEDICATION
  4. ZOFRAN [Concomitant]
     Indication: PREMEDICATION
  5. EMEND [Concomitant]
     Indication: PREMEDICATION

REACTIONS (1)
  - ANAPHYLACTIC SHOCK [None]
